FAERS Safety Report 24091560 (Version 1)
Quarter: 2024Q3

REPORT INFORMATION
  Report Type: Spontaneous
  Country: FR (occurrence: FR)
  Receive Date: 20240715
  Receipt Date: 20240715
  Transmission Date: 20241017
  Serious: Yes (Hospitalization)
  Sender: FRESENIUS KABI
  Company Number: None

PATIENT
  Age: 61 Year
  Sex: Male
  Weight: 65.2 kg

DRUGS (2)
  1. PROPOFOL [Suspect]
     Active Substance: PROPOFOL
     Indication: Anaesthesia
     Dosage: 2,3 MG/KG/H
     Route: 042
     Dates: start: 20240412, end: 20240412
  2. MYCAMINE [Suspect]
     Active Substance: MICAFUNGIN SODIUM
     Indication: Product used for unknown indication
     Dosage: 12/04 : 150 MG, 13/04 : 100 MG, 14/04 : 100 MG
     Route: 042
     Dates: start: 20240412, end: 20240414

REACTIONS (2)
  - Hepatic cytolysis [Recovered/Resolved]
  - Organ failure [Recovered/Resolved]

NARRATIVE: CASE EVENT DATE: 20240412
